FAERS Safety Report 12850426 (Version 2)
Quarter: 2016Q4

REPORT INFORMATION
  Report Type: Spontaneous
  Country: US (occurrence: US)
  Receive Date: 20161014
  Receipt Date: 20161220
  Transmission Date: 20170207
  Serious: Yes (Hospitalization, Other)
  Sender: FDA-Public Use
  Company Number: US-TEVA-702822USA

PATIENT
  Sex: Male

DRUGS (1)
  1. PRAVASTATIN. [Suspect]
     Active Substance: PRAVASTATIN
     Route: 065
     Dates: start: 20141117

REACTIONS (10)
  - Blood bilirubin increased [Recovering/Resolving]
  - Chest pain [Unknown]
  - Expired product administered [Unknown]
  - Cholecystectomy [Not Recovered/Not Resolved]
  - Adverse event [Unknown]
  - Pain [Unknown]
  - Malaise [Unknown]
  - Drug dispensing error [Unknown]
  - Malaise [Recovering/Resolving]
  - Emotional distress [Unknown]

NARRATIVE: CASE EVENT DATE: 201411
